FAERS Safety Report 8810616 (Version 2)
Quarter: 2012Q4

REPORT INFORMATION
  Report Type: 
  Country: US (occurrence: US)
  Receive Date: 20120927
  Receipt Date: 20121002
  Transmission Date: 20130627
  Serious: Yes (Hospitalization, Other)
  Sender: FDA-Public Use
  Company Number: US-AMGEN-USASP2012060654

PATIENT
  Age: 62 Year
  Sex: Female
  Weight: 129.5 kg

DRUGS (6)
  1. PEGFILGRASTIM [Suspect]
     Indication: BREAST CANCER
  2. BEVACIZUMAB [Suspect]
     Indication: BREAST CANCER
     Dosage: 10 mg/kg,over 30-90 minutes on day 1 of wks 1, 3
     Route: 065
     Dates: start: 20110725
  3. PACLITAXEL [Suspect]
     Indication: BREAST CANCER
     Dosage: 80 mg/m2, over I hour on day I of wks 1-12
     Route: 042
     Dates: start: 20110725
  4. DOXORUBICIN HYDROCHLORIDE [Suspect]
     Indication: BREAST CANCER
     Dosage: 60 mg/m2,over 5-10 mins on day 1 of wk 13,15,17
     Route: 042
     Dates: start: 20110725
  5. CYCLOPHOSPHAMIDE [Suspect]
     Indication: BREAST CANCER
     Dosage: 600 mg/m2,over 5-20 minutes on day 1 ok wk 13,15
     Route: 042
     Dates: start: 20110725
  6. DEXAMETHASONE [Suspect]
     Indication: BREAST CANCER

REACTIONS (2)
  - Cardiac failure [Recovered/Resolved]
  - Left ventricular dysfunction [Recovered/Resolved]
